FAERS Safety Report 18207435 (Version 1)
Quarter: 2020Q3

REPORT INFORMATION
  Report Type: Spontaneous
  Country: US (occurrence: US)
  Receive Date: 20200827
  Receipt Date: 20200827
  Transmission Date: 20201103
  Serious: Yes (Death)
  Sender: FDA-Public Use
  Company Number: None

PATIENT
  Age: 83 Year
  Sex: Female

DRUGS (12)
  1. METOLAZONE. [Concomitant]
     Active Substance: METOLAZONE
  2. OPSUMIT [Concomitant]
     Active Substance: MACITENTAN
  3. FUROSEMIDE. [Concomitant]
     Active Substance: FUROSEMIDE
  4. TADALAFIL 20MG TAB 60/BO: 20MG [Suspect]
     Active Substance: TADALAFIL
     Indication: PULMONARY ARTERIAL HYPERTENSION
     Route: 048
     Dates: start: 201808, end: 202007
  5. CINACALCET. [Concomitant]
     Active Substance: CINACALCET
  6. LEVOTHYROXINE. [Concomitant]
     Active Substance: LEVOTHYROXINE
  7. FERROUS SULFATE. [Concomitant]
     Active Substance: FERROUS SULFATE
  8. CALCITRIOL. [Concomitant]
     Active Substance: CALCITRIOL
  9. COLCHICINE. [Concomitant]
     Active Substance: COLCHICINE
  10. CARVEDILOL. [Concomitant]
     Active Substance: CARVEDILOL
  11. ESTRADIOL. [Concomitant]
     Active Substance: ESTRADIOL
  12. VITAMIN D3 [Concomitant]
     Active Substance: CHOLECALCIFEROL

REACTIONS (6)
  - Condition aggravated [None]
  - Weight increased [None]
  - Acute kidney injury [None]
  - Cardiac failure congestive [None]
  - Fall [None]
  - Hyponatraemia [None]

NARRATIVE: CASE EVENT DATE: 20200717
